FAERS Safety Report 9514098 (Version 2)
Quarter: 2013Q4

REPORT INFORMATION
  Report Type: Spontaneous
  Country: DE (occurrence: DE)
  Receive Date: 20130910
  Receipt Date: 20131016
  Transmission Date: 20140711
  Serious: Yes (Other)
  Sender: FDA-Public Use
  Company Number: GXKR2013DE002980

PATIENT
  Age: 48 Year
  Sex: Male
  Weight: 83 kg

DRUGS (1)
  1. METOHEXAL COMP [Suspect]
     Indication: HYPERTENSION
     Dosage: 0.5 DF, QD
     Route: 048
     Dates: start: 201210, end: 201308

REACTIONS (2)
  - Nephrolithiasis [Unknown]
  - Hyperuricaemia [Unknown]
